FAERS Safety Report 4376980-X (Version None)
Quarter: 2004Q2

REPORT INFORMATION
  Report Type: 
  Country: None (occurrence: None)
  Receive Date: 20040608
  Receipt Date: 20040524
  Transmission Date: 20050107
  Serious: Yes (Other)
  Sender: FDA-Public Use
  Company Number: US-JNJFOC-20040505929

PATIENT
  Age: 62 Year
  Sex: Female

DRUGS (6)
  1. REMICADE (INFLIXIMAB, RECOMBINANT) LYOPHILIZED POWDER [Suspect]
     Indication: RHEUMATOID ARTHRITIS
     Dosage: 200 MG, 10 IN, INTRAVENOUS
     Route: 042
     Dates: start: 20010207, end: 20020324
  2. ANAKINRA (ANAKINRA) [Suspect]
     Indication: RHEUMATOID ARTHRITIS
  3. METHOTREXATE [Suspect]
     Indication: RHEUMATOID ARTHRITIS
     Dosage: 15 MG, 1 IN 1 WEEK
  4. ETANERCEPT (ETANERCEPT) [Suspect]
     Indication: RHEUMATOID ARTHRITIS
  5. CORTISONE (CORTISONE) [Concomitant]
  6. DICLOFENAC (DICLOFENAC) [Concomitant]

REACTIONS (1)
  - BREAST CANCER FEMALE [None]
